FAERS Safety Report 23937106 (Version 10)
Quarter: 2024Q4

REPORT INFORMATION
  Report Type: Spontaneous
  Country: CA (occurrence: CA)
  Receive Date: 20240604
  Receipt Date: 20241007
  Transmission Date: 20250114
  Serious: Yes (Other)
  Sender: PFIZER
  Company Number: CA-PFIZER INC-PV202400041332

PATIENT
  Age: 45 Year
  Sex: Male
  Weight: 88 kg

DRUGS (15)
  1. ZIRABEV [Suspect]
     Active Substance: BEVACIZUMAB-BVZR
     Indication: Glioblastoma
     Dosage: UNK (840)
     Dates: start: 20240326
  2. ZIRABEV [Suspect]
     Active Substance: BEVACIZUMAB-BVZR
     Dosage: UNK (840)
     Dates: start: 20240326
  3. ZIRABEV [Suspect]
     Active Substance: BEVACIZUMAB-BVZR
     Dosage: 840 MG, Q2WEEKS
     Route: 042
     Dates: start: 20240326
  4. ZIRABEV [Suspect]
     Active Substance: BEVACIZUMAB-BVZR
     Dosage: 840 MG
     Dates: start: 20240416, end: 20240416
  5. ZIRABEV [Suspect]
     Active Substance: BEVACIZUMAB-BVZR
     Dosage: 840 MG
     Dates: start: 20240430
  6. ZIRABEV [Suspect]
     Active Substance: BEVACIZUMAB-BVZR
     Dosage: 840 MG
     Dates: start: 20240514
  7. ZIRABEV [Suspect]
     Active Substance: BEVACIZUMAB-BVZR
     Dosage: 10 MG/KG, Q 2 WEEKS
  8. ZIRABEV [Suspect]
     Active Substance: BEVACIZUMAB-BVZR
     Dosage: 890 MG Q 3 WEEKS
     Dates: start: 20240618
  9. ZIRABEV [Suspect]
     Active Substance: BEVACIZUMAB-BVZR
     Dosage: 890 MG Q 3 WEEKS
     Dates: start: 20240618
  10. ZIRABEV [Suspect]
     Active Substance: BEVACIZUMAB-BVZR
     Dosage: 890 MG, EVERY 2 WEEKS
     Dates: start: 20240702
  11. ZIRABEV [Suspect]
     Active Substance: BEVACIZUMAB-BVZR
     Dosage: 890 MG, EVERY 2 WEEKS
     Dates: start: 20240702
  12. ZIRABEV [Suspect]
     Active Substance: BEVACIZUMAB-BVZR
     Dosage: 890 MG, EVERY 2 WEEKS
     Dates: start: 20240730
  13. ZIRABEV [Suspect]
     Active Substance: BEVACIZUMAB-BVZR
     Dosage: 890 MG, EVERY 2 WEEKS
     Route: 042
     Dates: start: 20240813
  14. ZIRABEV [Suspect]
     Active Substance: BEVACIZUMAB-BVZR
     Dosage: 900 MG, EVERY 3 WEEKS
     Route: 042
     Dates: start: 20240910
  15. ZIRABEV [Suspect]
     Active Substance: BEVACIZUMAB-BVZR
     Dosage: EVERY 3 WEEKS
     Route: 042
     Dates: start: 20241001

REACTIONS (18)
  - Lower respiratory tract infection [Unknown]
  - Blood pressure increased [Not Recovered/Not Resolved]
  - Weight fluctuation [Not Recovered/Not Resolved]
  - Muscle spasms [Recovered/Resolved]
  - Head discomfort [Unknown]
  - Confusional state [Not Recovered/Not Resolved]
  - Fatigue [Unknown]
  - Asthenia [Not Recovered/Not Resolved]
  - Fall [Unknown]
  - Back pain [Unknown]
  - Musculoskeletal chest pain [Unknown]
  - Contusion [Unknown]
  - Lethargy [Unknown]
  - Muscular weakness [Not Recovered/Not Resolved]
  - Wound [Not Recovered/Not Resolved]
  - Mobility decreased [Unknown]
  - Amnesia [Not Recovered/Not Resolved]
  - Off label use [Unknown]

NARRATIVE: CASE EVENT DATE: 20240101
